FAERS Safety Report 8974974 (Version 2)
Quarter: 2013Q3

REPORT INFORMATION
  Report Type: Spontaneous
  Country: US (occurrence: US)
  Receive Date: 20121219
  Receipt Date: 20130806
  Transmission Date: 20140515
  Serious: Yes (Other)
  Sender: FDA-Public Use
  Company Number: US-ELI_LILLY_AND_COMPANY-US201201003827

PATIENT
  Age: 84 Year
  Sex: Male

DRUGS (15)
  1. CYMBALTA [Suspect]
     Indication: DEPRESSION
     Dosage: 30 MG, QD
     Dates: start: 20120103
  2. CYMBALTA [Suspect]
     Indication: HEADACHE
     Dosage: 60 MG, QD
     Route: 048
     Dates: start: 20110109
  3. CYMBALTA [Suspect]
     Dosage: 30 MG, UNKNOWN
  4. CYMBALTA [Suspect]
     Dosage: 30 MG, QOD
  5. CYMBALTA [Suspect]
     Dosage: 60 MG, EACH EVENING
  6. GABAPENTIN [Concomitant]
     Indication: PRODUCT USED FOR UNKNOWN INDICATION
     Dosage: 100 MG, QD
  7. ARICEPT [Concomitant]
  8. SYNTHROID [Concomitant]
  9. GLIMEPIRIDE [Concomitant]
  10. ZOCOR [Concomitant]
  11. CALCITRIOL [Concomitant]
  12. MAGNESIUM OXIDE [Concomitant]
  13. FOLIC ACID [Concomitant]
  14. LUTEIN [Concomitant]
  15. ACETAMINOPHEN [Concomitant]

REACTIONS (11)
  - Skin ulcer haemorrhage [Not Recovered/Not Resolved]
  - Skin infection [Not Recovered/Not Resolved]
  - Dementia [Unknown]
  - Amnesia [Unknown]
  - Body temperature increased [Unknown]
  - Blood calcium decreased [Unknown]
  - Headache [Unknown]
  - Diarrhoea [Unknown]
  - Hypersomnia [Unknown]
  - Fatigue [Unknown]
  - Decreased appetite [Unknown]
